FAERS Safety Report 4506487-8 (Version None)
Quarter: 2004Q4

REPORT INFORMATION
  Report Type: 
  Country: None (occurrence: None)
  Receive Date: 20041122
  Receipt Date: 20041028
  Transmission Date: 20050328
  Serious: Yes (Other)
  Sender: FDA-Public Use
  Company Number: GB-ABBOTT-04P-167-0279151-00

PATIENT
  Age: 23 Year
  Sex: Female

DRUGS (1)
  1. EPILIM [Suspect]
     Indication: EPILEPSY
     Dates: start: 19850101

REACTIONS (2)
  - ABORTION INDUCED [None]
  - DRUG EXPOSURE DURING PREGNANCY [None]
